FAERS Safety Report 25606502 (Version 1)
Quarter: 2025Q3

REPORT INFORMATION
  Report Type: Spontaneous
  Country: US (occurrence: US)
  Receive Date: 20250725
  Receipt Date: 20250725
  Transmission Date: 20251021
  Serious: No
  Sender: MERCK SHARP & DOHME LLC
  Company Number: US-009507513-2303177

PATIENT
  Age: 77 Year
  Sex: Female

DRUGS (5)
  1. PEMBROLIZUMAB [Suspect]
     Active Substance: PEMBROLIZUMAB
     Indication: Endometrial cancer
     Route: 065
  2. LENVIMA [Suspect]
     Active Substance: LENVATINIB
     Indication: Endometrial cancer
     Route: 048
     Dates: start: 20240820, end: 20240917
  3. LENVIMA [Suspect]
     Active Substance: LENVATINIB
     Indication: Endometrial cancer
     Dosage: PATIENT WAS TAKING 20 MG ONE DAY FOLLOW UP BY 10 MG THE NEXT
     Route: 048
     Dates: start: 20240917
  4. LENVIMA [Suspect]
     Active Substance: LENVATINIB
     Indication: Endometrial cancer
     Route: 048
  5. LENVIMA [Suspect]
     Active Substance: LENVATINIB
     Indication: Endometrial cancer
     Route: 048
     Dates: start: 20250302

REACTIONS (4)
  - Chills [Unknown]
  - Hypersensitivity [Unknown]
  - Dyspnoea [Unknown]
  - Paraesthesia [Unknown]
